FAERS Safety Report 4336595-6 (Version None)
Quarter: 2004Q2

REPORT INFORMATION
  Report Type: 
  Country: None (occurrence: None)
  Receive Date: 20040409
  Receipt Date: 20040409
  Transmission Date: 20050107
  Serious: Yes (Hospitalization)
  Sender: FDA-Public Use
  Company Number: None

PATIENT
  Age: 91 Year
  Sex: Male
  Weight: 52.8 kg

DRUGS (3)
  1. ASPIRIN [Suspect]
     Indication: CARDIAC DISORDER
     Dosage: 325  MG DAILY  ORAL
     Route: 048
     Dates: start: 20030201, end: 20040201
  2. ASPIRIN [Suspect]
     Indication: PROPHYLAXIS
     Dosage: 325  MG DAILY  ORAL
     Route: 048
     Dates: start: 20030201, end: 20040201
  3. CELEBREX [Suspect]
     Dosage: 200 MG AS   ORAL
     Route: 048
     Dates: start: 20030201, end: 20040201

REACTIONS (2)
  - PNEUMONIA [None]
  - UPPER GASTROINTESTINAL HAEMORRHAGE [None]
